FAERS Safety Report 24438722 (Version 2)
Quarter: 2024Q4

REPORT INFORMATION
  Report Type: Spontaneous
  Country: PL (occurrence: PL)
  Receive Date: 20241015
  Receipt Date: 20241017
  Transmission Date: 20250115
  Serious: Yes (Hospitalization, Other)
  Sender: INCYTE
  Company Number: PL-002147023-NVSC2024PL200329

PATIENT

DRUGS (2)
  1. RUXOLITINIB [Suspect]
     Active Substance: RUXOLITINIB
     Indication: Product used for unknown indication
     Dosage: 25 MG, QD (2X1 TABLET)
     Route: 065
     Dates: start: 201710
  2. RUXOLITINIB [Suspect]
     Active Substance: RUXOLITINIB
     Dosage: 15 MG, QD (2X1 TABLET)
     Route: 065
     Dates: start: 202007

REACTIONS (7)
  - Pyrexia [Unknown]
  - Pulmonary mass [Unknown]
  - Organising pneumonia [Unknown]
  - Pneumonia [Unknown]
  - Anaemia [Recovered/Resolved]
  - Chronic kidney disease [Unknown]
  - Genital herpes [Unknown]

NARRATIVE: CASE EVENT DATE: 20210601
